FAERS Safety Report 4396693-8 (Version None)
Quarter: 2004Q3

REPORT INFORMATION
  Report Type: 
  Country: None (occurrence: None)
  Receive Date: 20040709
  Receipt Date: 20040629
  Transmission Date: 20050211
  Serious: Yes (Death)
  Sender: FDA-Public Use
  Company Number: 2004JP000903

PATIENT
  Age: 41 Year
  Sex: Male
  Weight: 41 kg

DRUGS (7)
  1. PROGRAF [Suspect]
     Indication: RENAL TRANSPLANT
     Dosage: SEE IMAGE
     Route: 042
     Dates: start: 20040412, end: 20040416
  2. PROGRAF [Suspect]
     Indication: RENAL TRANSPLANT
     Dosage: SEE IMAGE
     Route: 042
     Dates: start: 20040416, end: 20040416
  3. PROGRAF [Suspect]
     Indication: RENAL TRANSPLANT
     Dosage: SEE IMAGE
     Route: 042
     Dates: start: 20040417, end: 20040417
  4. PROGRAF [Suspect]
     Indication: RENAL TRANSPLANT
     Dosage: SEE IMAGE
     Route: 042
     Dates: start: 20040418, end: 20040418
  5. PREDNISOLONE [Concomitant]
  6. CELLCEPT [Concomitant]
  7. SIMULECT [Concomitant]

REACTIONS (10)
  - ANTIPHOSPHOLIPID ANTIBODIES POSITIVE [None]
  - CARDIAC DISORDER [None]
  - COMPLICATIONS OF TRANSPLANTED KIDNEY [None]
  - DEPRESSED LEVEL OF CONSCIOUSNESS [None]
  - DISSEMINATED INTRAVASCULAR COAGULATION [None]
  - ENDOTHELIAL DYSFUNCTION [None]
  - ENDOTOXIC SHOCK [None]
  - GASTROINTESTINAL NECROSIS [None]
  - RENAL FAILURE [None]
  - SOMNOLENCE [None]
